FAERS Safety Report 26047500 (Version 1)
Quarter: 2025Q4

REPORT INFORMATION
  Report Type: Spontaneous
  Country: US (occurrence: None)
  Receive Date: 20251114
  Receipt Date: 20251114
  Transmission Date: 20260117
  Serious: Yes (Hospitalization)
  Sender: FDA-CTU
  Company Number: None

PATIENT
  Sex: Female

DRUGS (4)
  1. TADALAFIL [Suspect]
     Active Substance: TADALAFIL
     Indication: Pulmonary hypertension
     Dosage: TAKE 2 TABLETS BY MOUTH EVERY DAY
     Route: 048
     Dates: start: 20180425
  2. METOPROLOL [Concomitant]
     Active Substance: METOPROLOL
  3. TREMFYA [Concomitant]
     Active Substance: GUSELKUMAB
  4. lv1TAMIN B-12 [Concomitant]

REACTIONS (2)
  - Hospitalisation [None]
  - Intentional dose omission [None]
